FAERS Safety Report 20467563 (Version 2)
Quarter: 2022Q1

REPORT INFORMATION
  Report Type: Spontaneous
  Country: US (occurrence: US)
  Receive Date: 20220214
  Receipt Date: 20220302
  Transmission Date: 20220423
  Serious: No
  Sender: FDA-Public Use
  Company Number: US-BIOGEN-2022BI01095627

PATIENT
  Age: 62 Year
  Sex: Female

DRUGS (1)
  1. TECFIDERA [Suspect]
     Active Substance: DIMETHYL FUMARATE
     Indication: Multiple sclerosis
     Route: 048
     Dates: start: 202001

REACTIONS (8)
  - White blood cell count decreased [Unknown]
  - Vitamin B12 abnormal [Unknown]
  - Fatigue [Unknown]
  - Head injury [Unknown]
  - Fall [Recovered/Resolved]
  - Dizziness [Unknown]
  - Vitamin D decreased [Recovered/Resolved]
  - Flushing [Unknown]

NARRATIVE: CASE EVENT DATE: 20220101
